FAERS Safety Report 18806908 (Version 1)
Quarter: 2021Q1

REPORT INFORMATION
  Report Type: Spontaneous
  Country: US (occurrence: US)
  Receive Date: 20210129
  Receipt Date: 20210129
  Transmission Date: 20210419
  Serious: Yes (Death)
  Sender: FDA-Public Use
  Company Number: US-STRIDES ARCOLAB LIMITED-2021SP001283

PATIENT
  Age: 53 Year
  Sex: Male

DRUGS (8)
  1. BEVACIZUMAB. [Concomitant]
     Active Substance: BEVACIZUMAB
     Indication: SARCOMA METASTATIC
     Dosage: UNK
     Route: 065
  2. PREDNISOLONE. [Suspect]
     Active Substance: PREDNISOLONE
     Indication: ADRENAL INSUFFICIENCY
     Dosage: 20 MILLIGRAM, BID
     Route: 048
  3. TEMOZOLOMIDE. [Concomitant]
     Active Substance: TEMOZOLOMIDE
     Indication: SARCOMA METASTATIC
     Dosage: UNK
     Route: 065
  4. GLUCOSE [Concomitant]
     Active Substance: DEXTROSE
     Indication: BLOOD GLUCOSE
     Dosage: UNK
     Route: 065
  5. DOXORUBICIN [Concomitant]
     Active Substance: DOXORUBICIN
     Dosage: 100 MILLIGRAM
     Route: 065
  6. OLARATUMAB [Concomitant]
     Active Substance: OLARATUMAB
     Indication: SARCOMA METASTATIC
     Dosage: UNK
     Route: 065
  7. PREDNISOLONE. [Suspect]
     Active Substance: PREDNISOLONE
     Dosage: 20 MILLIGRAM, MORNING DOSE AT THE DAY OF THE PROCEDURE
     Route: 065
  8. DOXORUBICIN [Concomitant]
     Active Substance: DOXORUBICIN
     Indication: SARCOMA METASTATIC
     Dosage: UNK
     Route: 065

REACTIONS (1)
  - Adrenocortical insufficiency acute [Fatal]
